FAERS Safety Report 22311731 (Version 1)
Quarter: 2023Q2

REPORT INFORMATION
  Report Type: Spontaneous
  Country: US (occurrence: None)
  Receive Date: 20230512
  Receipt Date: 20230512
  Transmission Date: 20230721
  Serious: Yes (Hospitalization)
  Sender: FDA-Public Use
  Company Number: 2023A106587

PATIENT

DRUGS (2)
  1. BUDESONIDE\FORMOTEROL FUMARATE DIHYDRATE [Suspect]
     Active Substance: BUDESONIDE\FORMOTEROL FUMARATE DIHYDRATE
     Route: 055
  2. BUDESONIDE [Suspect]
     Active Substance: BUDESONIDE
     Route: 055

REACTIONS (2)
  - Diabetes mellitus [Unknown]
  - Device use issue [Unknown]
